FAERS Safety Report 4289284-0 (Version None)
Quarter: 2004Q1

REPORT INFORMATION
  Report Type: 
  Country: None (occurrence: None)
  Receive Date: 20040206
  Receipt Date: 20040126
  Transmission Date: 20041129
  Serious: Yes (Life-Threatening, Hospitalization)
  Sender: FDA-Public Use
  Company Number: 04P-087-0248942-00

PATIENT

DRUGS (6)
  1. BIAXIN [Suspect]
     Dosage: PER ORAL
     Route: 048
  2. BLOPRESS TABLETS (CANDESARTAN CILEXETIL) (CANDESARTAN CILEXETIL) (CAND [Suspect]
     Indication: HYPERTENSION
     Dosage: 8 MG, 1 IN 1 D, PER ORAL
     Route: 048
     Dates: start: 20020101, end: 20040101
  3. MENATETRENONE [Concomitant]
  4. FERROUS CITRATE [Concomitant]
  5. TICLOPIDINE HYDROCHLORIDE [Concomitant]
  6. AMLODIPINE BESYLATE [Concomitant]

REACTIONS (4)
  - MULTI-ORGAN FAILURE [None]
  - PAIN [None]
  - RHABDOMYOLYSIS [None]
  - SHOCK [None]
